FAERS Safety Report 5897432-1 (Version None)
Quarter: 2008Q3

REPORT INFORMATION
  Report Type: 
  Country: None (occurrence: None)
  Receive Date: 20080925
  Receipt Date: 20080922
  Transmission Date: 20090109
  Serious: Yes (Hospitalization)
  Sender: FDA-Public Use
  Company Number: FR-WYE-G02208408

PATIENT
  Sex: Female

DRUGS (7)
  1. EFFEXOR [Suspect]
     Route: 048
     Dates: start: 20070101, end: 20071201
  2. EFFEXOR [Suspect]
     Route: 048
     Dates: start: 20071201, end: 20080101
  3. EFFEXOR [Suspect]
     Dosage: UNKNOWN
     Route: 048
     Dates: start: 20080101, end: 20080101
  4. THERALENE [Concomitant]
     Dosage: 5 MG, OCCASIONAL INTAKE
     Route: 048
  5. OXAZEPAM [Concomitant]
     Dosage: UNKNOWN
     Route: 048
  6. TERCIAN [Concomitant]
     Route: 048
  7. TRANXENE [Concomitant]
     Dosage: UNKNOWN
     Route: 048

REACTIONS (8)
  - ANXIETY [None]
  - CONDITION AGGRAVATED [None]
  - DEPRESSION [None]
  - EXCESSIVE SEXUAL FANTASIES [None]
  - FEELING GUILTY [None]
  - OBSESSIVE THOUGHTS [None]
  - PSYCHOSEXUAL DISORDER [None]
  - SOCIAL PHOBIA [None]
